FAERS Safety Report 20708250 (Version 5)
Quarter: 2023Q1

REPORT INFORMATION
  Report Type: Spontaneous
  Country: CA (occurrence: CA)
  Receive Date: 20220414
  Receipt Date: 20230304
  Transmission Date: 20230418
  Serious: Yes (Other)
  Sender: FDA-Public Use
  Company Number: CA-CELLTRION INC.-2021CA001167

PATIENT

DRUGS (14)
  1. INFLECTRA [Suspect]
     Active Substance: INFLIXIMAB-DYYB
     Indication: Colitis ulcerative
     Dosage: 300 MG EVERY 6 WEEKS
     Route: 042
     Dates: start: 20210315
  2. INFLECTRA [Suspect]
     Active Substance: INFLIXIMAB-DYYB
     Dosage: 300 MG EVERY 6 WEEKS
     Route: 042
     Dates: start: 20211101
  3. INFLECTRA [Suspect]
     Active Substance: INFLIXIMAB-DYYB
     Dosage: 300 MG EVERY 6 WEEKS
     Route: 042
     Dates: start: 20211213
  4. INFLECTRA [Suspect]
     Active Substance: INFLIXIMAB-DYYB
     Dosage: 300 MG EVERY 6 WEEKS
     Route: 042
     Dates: start: 20220127
  5. INFLECTRA [Suspect]
     Active Substance: INFLIXIMAB-DYYB
     Dosage: 300 MG EVERY 6 WEEKS
     Route: 042
     Dates: start: 20220127
  6. INFLECTRA [Suspect]
     Active Substance: INFLIXIMAB-DYYB
     Dosage: 300 MG EVERY 6 WEEKS
     Route: 042
     Dates: start: 20220127
  7. INFLECTRA [Suspect]
     Active Substance: INFLIXIMAB-DYYB
     Dosage: 300 MG EVERY 6 WEEKS
     Route: 042
     Dates: start: 20220411
  8. INFLECTRA [Suspect]
     Active Substance: INFLIXIMAB-DYYB
     Dosage: 300 MG EVERY 6 WEEKS
     Route: 042
     Dates: start: 20220516
  9. INFLECTRA [Suspect]
     Active Substance: INFLIXIMAB-DYYB
     Dosage: 300 MG , EVERY 6 WEEKS
     Route: 042
     Dates: start: 20220808
  10. INFLECTRA [Suspect]
     Active Substance: INFLIXIMAB-DYYB
     Dosage: 300 MG , EVERY 6 WEEKS
     Route: 042
     Dates: start: 20220808
  11. INFLECTRA [Suspect]
     Active Substance: INFLIXIMAB-DYYB
     Dosage: 300 MG , EVERY 6 WEEKS
     Route: 042
     Dates: start: 20221022
  12. INFLECTRA [Suspect]
     Active Substance: INFLIXIMAB-DYYB
     Dosage: 300 MG , EVERY 6 WEEKS
     Route: 042
     Dates: start: 20221022
  13. INFLECTRA [Suspect]
     Active Substance: INFLIXIMAB-DYYB
     Dosage: 300 MG , EVERY 6 WEEKS
     Route: 042
     Dates: start: 20230114
  14. IMURAN [Concomitant]
     Active Substance: AZATHIOPRINE
     Indication: Colitis ulcerative
     Dosage: 100 MG, 1X/DAY
     Route: 048

REACTIONS (11)
  - Cellulitis [Unknown]
  - Off label use [Unknown]
  - Inappropriate schedule of product administration [Unknown]
  - Exposure to SARS-CoV-2 [Unknown]
  - Off label use [Unknown]
  - Intentional product use issue [Unknown]
  - Product dose omission issue [Unknown]
  - Off label use [Unknown]
  - Urinary tract infection [Recovered/Resolved]
  - COVID-19 [Recovered/Resolved]
  - Cyst [Unknown]

NARRATIVE: CASE EVENT DATE: 20210315
